FAERS Safety Report 13428358 (Version 2)
Quarter: 2017Q3

REPORT INFORMATION
  Report Type: Spontaneous
  Country: JP (occurrence: JP)
  Receive Date: 20170411
  Receipt Date: 20170720
  Transmission Date: 20171127
  Serious: Yes (Death, Other)
  Sender: FDA-Public Use
  Company Number: JP-009507513-1704JPN000855J

PATIENT
  Age: 78 Year
  Sex: Male
  Weight: 52 kg

DRUGS (4)
  1. CYLOCIDE [Concomitant]
     Active Substance: CYTARABINE
     Indication: ACUTE MYELOID LEUKAEMIA
     Dosage: 20 MG, QD
     Route: 051
     Dates: start: 20160810, end: 20160822
  2. FLUCONAZOLE. [Concomitant]
     Active Substance: FLUCONAZOLE
     Indication: LOWER RESPIRATORY TRACT INFECTION
     Dosage: 100 MG, UNK
     Route: 048
     Dates: start: 20160814, end: 20160822
  3. CANCIDAS [Suspect]
     Active Substance: CASPOFUNGIN ACETATE
     Indication: LOWER RESPIRATORY TRACT INFECTION
     Dosage: 70 MG, QD
     Route: 041
     Dates: start: 20160821, end: 20160821
  4. CANCIDAS [Suspect]
     Active Substance: CASPOFUNGIN ACETATE
     Indication: LOWER RESPIRATORY TRACT INFECTION
     Dosage: 50 MG, QD
     Route: 041
     Dates: start: 20160822, end: 20160822

REACTIONS (2)
  - Blood lactate dehydrogenase increased [Not Recovered/Not Resolved]
  - Acute myeloid leukaemia [Fatal]

NARRATIVE: CASE EVENT DATE: 20160822
